FAERS Safety Report 4425976-8 (Version None)
Quarter: 2004Q3

REPORT INFORMATION
  Report Type: 
  Country: None (occurrence: None)
  Receive Date: 20040812
  Receipt Date: 20040715
  Transmission Date: 20050211
  Serious: Yes (Other)
  Sender: FDA-Public Use
  Company Number: 2004S1002071

PATIENT
  Age: 39 Year
  Sex: Male
  Weight: 74.8435 kg

DRUGS (3)
  1. NAPROXEN [Suspect]
     Indication: TENDONITIS
     Dosage: 500MG BID, ORAL
     Route: 048
     Dates: start: 20040519
  2. CYCLOBENZAPRINE HCL [Concomitant]
  3. LORAZEPAM [Concomitant]

REACTIONS (6)
  - ANHIDROSIS [None]
  - BLOOD SODIUM INCREASED [None]
  - FEELING ABNORMAL [None]
  - HEPATIC PAIN [None]
  - OILY SKIN [None]
  - URINE OUTPUT DECREASED [None]
